FAERS Safety Report 19179980 (Version 1)
Quarter: 2021Q2

REPORT INFORMATION
  Report Type: Spontaneous
  Country: DE (occurrence: DE)
  Receive Date: 20210426
  Receipt Date: 20210426
  Transmission Date: 20210717
  Serious: Yes (Other)
  Sender: FDA-Public Use
  Company Number: DE-PFIZER INC-2021199910

PATIENT

DRUGS (4)
  1. TRUXIMA [Suspect]
     Active Substance: RITUXIMAB-ABBS
     Dosage: 1000 MG, REMISSION MAINTENANCE
     Dates: start: 202004
  2. METHOTREXATE SODIUM. [Suspect]
     Active Substance: METHOTREXATE SODIUM
     Dosage: UNK
  3. TRUXIMA [Suspect]
     Active Substance: RITUXIMAB-ABBS
     Indication: GRANULOMATOSIS WITH POLYANGIITIS
     Dosage: 700 MG CONTINUED EVERY 6 MONTHS AFTER INDUCTION PHASE
     Dates: start: 20180517
  4. CORTISONE [Suspect]
     Active Substance: CORTISONE
     Dosage: UNK

REACTIONS (3)
  - B-lymphocyte count decreased [Not Recovered/Not Resolved]
  - Off label use [Unknown]
  - T-lymphocyte count decreased [Not Recovered/Not Resolved]
